FAERS Safety Report 17245021 (Version 4)
Quarter: 2022Q1

REPORT INFORMATION
  Report Type: Report from Study
  Country: US (occurrence: US)
  Receive Date: 20200108
  Receipt Date: 20220131
  Transmission Date: 20220423
  Serious: No
  Sender: FDA-Public Use
  Company Number: None

PATIENT
  Sex: Female

DRUGS (1)
  1. COSENTYX [Suspect]
     Active Substance: SECUKINUMAB
     Indication: Ankylosing spondylitis
     Route: 058

REACTIONS (4)
  - Fatigue [Recovering/Resolving]
  - Injection site reaction [Recovering/Resolving]
  - Urticaria [Recovering/Resolving]
  - Therapeutic product effect decreased [Not Recovered/Not Resolved]
